FAERS Safety Report 5256032-7 (Version None)
Quarter: 2007Q1

REPORT INFORMATION
  Report Type: 
  Country: None (occurrence: None)
  Receive Date: 20070302
  Receipt Date: 20070302
  Transmission Date: 20070707
  Serious: Yes (Life-Threatening)
  Sender: FDA-Public Use
  Company Number: None

PATIENT
  Age: 76 Year
  Sex: Male

DRUGS (12)
  1. REGULAR INSULIN [Suspect]
     Indication: DIABETES MELLITUS
     Dosage: 2 UNITS
     Dates: start: 20061104, end: 20061105
  2. NPH INSULIN [Suspect]
     Indication: DIABETES MELLITUS
     Dosage: 4 UNITS
     Dates: start: 20061104, end: 20061105
  3. LEVOTHYROXINE SODIUM [Concomitant]
  4. ACTOS [Concomitant]
  5. ASPIRIN [Concomitant]
  6. ZYPREXA [Concomitant]
  7. IMDUR [Concomitant]
  8. PROTONIX [Concomitant]
  9. LOVENOX [Concomitant]
  10. LISINOPRIL [Concomitant]
  11. 1/2 N/S WITH 20 MEQ [Concomitant]
  12. VICODIN [Concomitant]

REACTIONS (1)
  - BLOOD GLUCOSE DECREASED [None]
